FAERS Safety Report 23543772 (Version 1)
Quarter: 2024Q1

REPORT INFORMATION
  Report Type: Spontaneous
  Country: US (occurrence: None)
  Receive Date: 20240216
  Receipt Date: 20240216
  Transmission Date: 20240409
  Serious: Yes (Other)
  Sender: FDA-Public Use
  Company Number: None

PATIENT
  Age: 58 Year
  Sex: Female

DRUGS (3)
  1. HYRIMOZ [Suspect]
     Active Substance: ADALIMUMAB-ADAZ
     Indication: Rheumatoid arthritis
     Dosage: OTHER FREQUENCY : EVERY 14 DAYS;?
     Route: 058
     Dates: start: 202401
  2. HYRIMOZ [Suspect]
     Active Substance: ADALIMUMAB-ADAZ
     Indication: Crohn^s disease
  3. HUMIRA [Concomitant]

REACTIONS (13)
  - Eye irritation [None]
  - Ocular hyperaemia [None]
  - Ear pain [None]
  - Oropharyngeal pain [None]
  - Myalgia [None]
  - Pain in extremity [None]
  - Urine output increased [None]
  - Muscle spasms [None]
  - Stomatitis [None]
  - Rash [None]
  - Diarrhoea [None]
  - Dizziness [None]
  - Pain [None]

NARRATIVE: CASE EVENT DATE: 20240127
